FAERS Safety Report 9863661 (Version 1)
Quarter: 2014Q1

REPORT INFORMATION
  Report Type: Spontaneous
  Country: US (occurrence: US)
  Receive Date: 20140203
  Receipt Date: 20140203
  Transmission Date: 20141002
  Serious: No
  Sender: FDA-Public Use
  Company Number: US-GILEAD-2013-0081221

PATIENT
  Age: 57 Year
  Sex: Female

DRUGS (1)
  1. CAYSTON [Suspect]
     Indication: BRONCHIECTASIS
     Dosage: 75 MG, UNK
     Route: 055
     Dates: start: 20130608

REACTIONS (1)
  - Cough [Recovered/Resolved]
